FAERS Safety Report 24557860 (Version 2)
Quarter: 2025Q3

REPORT INFORMATION
  Report Type: Spontaneous
  Country: US (occurrence: US)
  Receive Date: 20241028
  Receipt Date: 20250922
  Transmission Date: 20251021
  Serious: No
  Sender: MYLAN
  Company Number: US-MYLANLABS-2024M1097442

PATIENT
  Sex: Male
  Weight: 124 kg

DRUGS (1)
  1. LYRICA [Suspect]
     Active Substance: PREGABALIN
     Indication: Pain

REACTIONS (2)
  - Off label use [Unknown]
  - No adverse event [Recovered/Resolved]
